FAERS Safety Report 25080128 (Version 1)
Quarter: 2025Q1

REPORT INFORMATION
  Report Type: Spontaneous
  Country: US (occurrence: US)
  Receive Date: 20250314
  Receipt Date: 20250314
  Transmission Date: 20250409
  Serious: No
  Sender: MERCK SHARP & DOHME LLC
  Company Number: US-009507513-2261185

PATIENT
  Age: 59 Year
  Sex: Male

DRUGS (9)
  1. CASPOFUNGIN [Suspect]
     Active Substance: CASPOFUNGIN
     Indication: Scopulariopsis infection
  2. POSACONAZOLE [Suspect]
     Active Substance: POSACONAZOLE
     Indication: Scopulariopsis infection
  3. chemotherapy with rituximab, etoposide phosphate, vincristine sulfa... [Concomitant]
  4. chemotherapy with rituximab, etoposide phosphate, vincristine sulfa... [Concomitant]
  5. chemotherapy with rituximab, etoposide phosphate, vincristine sulfa... [Concomitant]
  6. chemotherapy with rituximab, etoposide phosphate, vincristine sulfa... [Concomitant]
  7. chemotherapy with rituximab, etoposide phosphate, vincristine sulfa... [Concomitant]
  8. IDELALISIB [Concomitant]
     Active Substance: IDELALISIB
  9. UNSPECIFIED INGREDIENT [Concomitant]
     Active Substance: UNSPECIFIED INGREDIENT

REACTIONS (2)
  - Drug ineffective [Unknown]
  - Product use in unapproved indication [Unknown]
